FAERS Safety Report 8401521 (Version 3)
Quarter: 2014Q1

REPORT INFORMATION
  Report Type: Report from Study
  Country: NL (occurrence: NL)
  Receive Date: 20120210
  Receipt Date: 20140121
  Transmission Date: 20141002
  Serious: Yes (Hospitalization, Other)
  Sender: FDA-Public Use
  Company Number: PHHY2012NL010565

PATIENT
  Age: 68 Year
  Sex: Male

DRUGS (11)
  1. ZOMETA [Suspect]
     Indication: PROSTATE CANCER METASTATIC
     Dosage: 4 MG/100ML, 1X PER 28 DAYS
     Route: 042
     Dates: start: 20101013
  2. ZOMETA [Suspect]
     Dosage: 4 MG/100ML,1X PER 28 DAYS
     Route: 042
     Dates: start: 20120109
  3. ZOMETA [Suspect]
     Dosage: 4 MG/100ML,1X PER 28 DAYS
     Route: 042
     Dates: start: 20120206
  4. ZOMETA [Suspect]
     Dosage: 4 MG/100ML,1X PER 28 DAYS
     Route: 042
     Dates: start: 20120405
  5. ZOMETA [Suspect]
     Dosage: 4 MG/100ML,1X PER 28 DAYS
     Route: 042
     Dates: start: 20120503
  6. ZOMETA [Suspect]
     Dosage: 4 MG /100 ML, 1X PER 4 WEEKS
     Route: 042
     Dates: start: 20131216
  7. ZOMETA [Suspect]
     Dosage: 4 MG /100 ML, 1X PER 4 WEEKS
     Route: 042
     Dates: start: 20140113
  8. ZYTIGA [Concomitant]
     Dosage: UNK UKN, UNK
  9. BLOOD TRANSFUSION, AUXILIARY PRODUCTS [Concomitant]
     Indication: HAEMOGLOBIN DECREASED
  10. AMOXICILLIN [Concomitant]
     Dosage: 500 UKN
  11. CIPROFLOXACIN [Concomitant]
     Dosage: 500 UKN

REACTIONS (8)
  - Pneumonia [Recovered/Resolved]
  - Respiratory tract infection [Recovered/Resolved]
  - Anaemia [Not Recovered/Not Resolved]
  - Haemoglobin decreased [Unknown]
  - Bone disorder [Unknown]
  - Metastases to bone [Not Recovered/Not Resolved]
  - Metastases to pelvis [Unknown]
  - Prostatic specific antigen increased [Not Recovered/Not Resolved]
